FAERS Safety Report 17096686 (Version 2)
Quarter: 2025Q3

REPORT INFORMATION
  Report Type: Spontaneous
  Country: EU (occurrence: EU)
  Receive Date: 20191202
  Receipt Date: 20250715
  Transmission Date: 20251021
  Serious: Yes (Other)
  Sender: AUROBINDO
  Company Number: EU-MYLANLABS-2019M1110776

PATIENT
  Age: 48 Year
  Sex: Male

DRUGS (4)
  1. GLIMEPIRIDE [Suspect]
     Active Substance: GLIMEPIRIDE
     Indication: Type 2 diabetes mellitus
     Route: 048
  2. METFORMIN [Suspect]
     Active Substance: METFORMIN HYDROCHLORIDE
     Indication: Type 2 diabetes mellitus
     Route: 048
  3. INSULIN NOS [Concomitant]
     Active Substance: INSULIN NOS
     Indication: Type 2 diabetes mellitus
     Route: 042
  4. THIOCTIC ACID [Concomitant]
     Active Substance: THIOCTIC ACID
     Indication: Diabetic neuropathy
     Route: 042

REACTIONS (3)
  - Diabetes mellitus inadequate control [Recovered/Resolved]
  - Diabetic neuropathy [Unknown]
  - Latent autoimmune diabetes in adults [Unknown]
